FAERS Safety Report 19233908 (Version 3)
Quarter: 2021Q4

REPORT INFORMATION
  Report Type: Spontaneous
  Country: JP (occurrence: JP)
  Receive Date: 20210508
  Receipt Date: 20211019
  Transmission Date: 20220303
  Serious: Yes (Death)
  Sender: FDA-Public Use
  Company Number: JP-ABBVIE-21K-087-3892153-00

PATIENT
  Age: 19 Year
  Sex: Female
  Weight: 50 kg

DRUGS (6)
  1. ADALIMUMAB [Suspect]
     Active Substance: ADALIMUMAB
     Indication: Crohn^s disease
     Dosage: LIQUID
     Route: 058
     Dates: start: 201410, end: 201608
  2. ADALIMUMAB [Suspect]
     Active Substance: ADALIMUMAB
     Dosage: LIQUID
     Route: 058
     Dates: start: 201609, end: 201702
  3. AZATHIOPRINE [Concomitant]
     Active Substance: AZATHIOPRINE
     Indication: Crohn^s disease
     Route: 048
     Dates: start: 2016, end: 2017
  4. MESALAMINE [Concomitant]
     Active Substance: MESALAMINE
     Indication: Crohn^s disease
     Route: 048
     Dates: start: 201410, end: 2015
  5. PREDNISOLONE [Concomitant]
     Active Substance: PREDNISOLONE
     Indication: Crohn^s disease
     Route: 048
     Dates: start: 201407, end: 201409
  6. PREDNISOLONE [Concomitant]
     Active Substance: PREDNISOLONE
     Route: 048
     Dates: start: 2015, end: 2015

REACTIONS (1)
  - Enteritis [Fatal]

NARRATIVE: CASE EVENT DATE: 20140101
